FAERS Safety Report 7774845-4 (Version None)
Quarter: 2011Q3

REPORT INFORMATION
  Report Type: 
  Country: None (occurrence: None)
  Receive Date: 20110920
  Receipt Date: 20110912
  Transmission Date: 20111222
  Serious: Yes (Death)
  Sender: FDA-Public Use
  Company Number: DSA_47604_2011

PATIENT
  Sex: Female

DRUGS (3)
  1. XENAZINE [Suspect]
     Indication: HUNTINGTON'S DISEASE
     Dosage: (12.5 MG QD ORAL), (12.5 MG BID ORAL), (12.5 MG TID ORAL)
     Route: 048
     Dates: start: 20090615
  2. XENAZINE [Suspect]
     Indication: HUNTINGTON'S DISEASE
     Dosage: (12.5 MG QD ORAL), (12.5 MG BID ORAL), (12.5 MG TID ORAL)
     Route: 048
     Dates: start: 20090608, end: 20090614
  3. XENAZINE [Suspect]
     Indication: HUNTINGTON'S DISEASE
     Dosage: (12.5 MG QD ORAL), (12.5 MG BID ORAL), (12.5 MG TID ORAL)
     Route: 048
     Dates: start: 20090601, end: 20090607

REACTIONS (1)
  - DEATH [None]
